FAERS Safety Report 12725775 (Version 6)
Quarter: 2017Q2

REPORT INFORMATION
  Report Type: Spontaneous
  Country: US (occurrence: US)
  Receive Date: 20160908
  Receipt Date: 20170425
  Transmission Date: 20170830
  Serious: Yes (Death, Hospitalization, Congenital Anomaly, Other)
  Sender: FDA-Public Use
  Company Number: PHEH2016US022715

PATIENT
  Sex: Female

DRUGS (2)
  1. ONDANSETRON HYDROCHLORIDE. [Suspect]
     Active Substance: ONDANSETRON HYDROCHLORIDE
     Indication: FOETAL EXPOSURE DURING PREGNANCY
     Route: 064
  2. ONDANSETRON DR REDDY [Suspect]
     Active Substance: ONDANSETRON
     Indication: FOETAL EXPOSURE DURING PREGNANCY
     Dosage: MOTHER DOSE: 8 MG, PRN
     Route: 064

REACTIONS (25)
  - Bicuspid aortic valve [Unknown]
  - Hypertelorism of orbit [Unknown]
  - Injury [Unknown]
  - Ventricular septal defect [Unknown]
  - Cardiac murmur [Unknown]
  - Anaemia [Unknown]
  - Aortic stenosis [Unknown]
  - Supravalvular aortic stenosis [Unknown]
  - Dysmorphism [Unknown]
  - Foetal growth restriction [Unknown]
  - Failure to thrive [Unknown]
  - Ventricular tachycardia [Unknown]
  - Pain [Unknown]
  - Hypophagia [Unknown]
  - Skin discolouration [Unknown]
  - Cardiogenic shock [Fatal]
  - Premature baby [Unknown]
  - Cardiac failure congestive [Unknown]
  - Pallor [Unknown]
  - Cardio-respiratory arrest [Fatal]
  - Aorta hypoplasia [Unknown]
  - Foetal exposure during pregnancy [Unknown]
  - Left-to-right cardiac shunt [Unknown]
  - Cardiac failure [Unknown]
  - Neonatal tachypnoea [Unknown]
